FAERS Safety Report 6464120-2 (Version None)
Quarter: 2009Q4

REPORT INFORMATION
  Report Type: 
  Country: None (occurrence: None)
  Receive Date: 20091201
  Receipt Date: 20091021
  Transmission Date: 20100525
  Serious: Yes (Other)
  Sender: FDA-Public Use
  Company Number: US-AMGEN-QUU370510

PATIENT
  Sex: Female

DRUGS (1)
  1. ENBREL [Suspect]
     Indication: RHEUMATOID ARTHRITIS
     Route: 058
     Dates: start: 20060509, end: 20060801

REACTIONS (5)
  - ARTHRALGIA [None]
  - CATARACT [None]
  - DEPRESSION [None]
  - MUSCULAR WEAKNESS [None]
  - PARAESTHESIA [None]
